FAERS Safety Report 10173753 (Version 1)
Quarter: 2014Q2

REPORT INFORMATION
  Report Type: Spontaneous
  Country: FR (occurrence: FR)
  Receive Date: 20140515
  Receipt Date: 20140515
  Transmission Date: 20141212
  Serious: Yes (Hospitalization)
  Sender: FDA-Public Use
  Company Number: FR-INCYTE CORPORATION-2014IN001237

PATIENT
  Age: 81 Year
  Sex: Female

DRUGS (5)
  1. JAKAVI [Suspect]
     Indication: MYELOFIBROSIS
     Dosage: 5 MG
     Route: 048
     Dates: start: 20111224, end: 201207
  2. HYDREA [Concomitant]
     Dosage: UNK UKN, UNK
     Dates: start: 201208
  3. KARDEGIC [Concomitant]
     Dosage: UNKNOWN
  4. VASTAREL [Concomitant]
     Dosage: UNK UKN, UNK
  5. NEOMERCAZOLE [Concomitant]
     Dosage: UNK UKN, UNK

REACTIONS (5)
  - Axonal neuropathy [Not Recovered/Not Resolved]
  - Peripheral sensorimotor neuropathy [Not Recovered/Not Resolved]
  - Dysarthria [Not Recovered/Not Resolved]
  - Dysphagia [Not Recovered/Not Resolved]
  - Dysphonia [Not Recovered/Not Resolved]
